FAERS Safety Report 14656863 (Version 1)
Quarter: 2018Q1

REPORT INFORMATION
  Report Type: Spontaneous
  Country: US (occurrence: US)
  Receive Date: 20180319
  Receipt Date: 20180319
  Transmission Date: 20180509
  Serious: No
  Sender: FDA-Public Use
  Company Number: US-SA-2017SA107437

PATIENT
  Age: 43 Year
  Sex: Female
  Weight: 56 kg

DRUGS (4)
  1. NASACORT ALLERGY 24HR [Suspect]
     Active Substance: TRIAMCINOLONE ACETONIDE
     Indication: RHINORRHOEA
     Dosage: 2 SPRAYS PER NOSESTRILL
     Route: 065
     Dates: start: 20170523, end: 201706
  2. NASACORT ALLERGY 24HR [Suspect]
     Active Substance: TRIAMCINOLONE ACETONIDE
     Indication: NASAL CONGESTION
     Dosage: 2 SPRAYS PER NOSESTRILL
     Route: 065
     Dates: start: 20170523, end: 201706
  3. NASACORT ALLERGY 24HR [Suspect]
     Active Substance: TRIAMCINOLONE ACETONIDE
     Indication: HYPERSENSITIVITY
     Dosage: 2 SPRAYS PER NOSESTRILL
     Route: 065
     Dates: start: 20170523, end: 201706
  4. NASACORT ALLERGY 24HR [Suspect]
     Active Substance: TRIAMCINOLONE ACETONIDE
     Indication: NASAL PRURITUS
     Dosage: 2 SPRAYS PER NOSESTRILL
     Route: 065
     Dates: start: 20170523, end: 201706

REACTIONS (1)
  - Drug ineffective [Unknown]
